FAERS Safety Report 6316578-7 (Version None)
Quarter: 2009Q3

REPORT INFORMATION
  Report Type: 
  Country: None (occurrence: None)
  Receive Date: 20090820
  Receipt Date: 20090818
  Transmission Date: 20100115
  Serious: Yes (Death)
  Sender: FDA-Public Use
  Company Number: PHHY2009AU14117

PATIENT
  Sex: Male

DRUGS (9)
  1. CLOZARIL [Suspect]
     Indication: SCHIZOPHRENIA
     Dosage: 600 MG
     Route: 048
     Dates: start: 19960111
  2. VALPROATE SODIUM [Concomitant]
     Dosage: 1 G, BID
  3. OLANZAPINE [Concomitant]
     Dosage: 10 MG NOCTE
  4. LIPITOR [Concomitant]
     Dosage: 40 MG DAILY
  5. FOLIC ACID [Concomitant]
     Dosage: 5 MG DAILY
  6. OSTELIN [Concomitant]
  7. CALTRATE [Concomitant]
     Dosage: 5 MG DAILY
  8. FUREX [Concomitant]
  9. LAXATIVES [Concomitant]

REACTIONS (2)
  - INTESTINAL OBSTRUCTION [None]
  - MALAISE [None]
